FAERS Safety Report 6532354-4 (Version None)
Quarter: 2010Q1

REPORT INFORMATION
  Report Type: 
  Country: None (occurrence: None)
  Receive Date: 20100108
  Receipt Date: 20091228
  Transmission Date: 20100710
  Serious: Yes (Other)
  Sender: FDA-Public Use
  Company Number: US-MYLANLABS-2009S1022039

PATIENT
  Age: 69 Year
  Sex: Female
  Weight: 58.97 kg

DRUGS (5)
  1. CLONAZEPAM [Suspect]
     Indication: FAECAL INCONTINENCE
     Route: 048
     Dates: start: 20000101, end: 20091219
  2. CLONAZEPAM [Suspect]
     Indication: ABDOMINAL RIGIDITY
     Route: 048
     Dates: start: 20000101, end: 20091219
  3. CLONAZEPAM [Suspect]
     Route: 048
     Dates: start: 20091220
  4. CLONAZEPAM [Suspect]
     Route: 048
     Dates: start: 20091220
  5. SYNTHROID [Concomitant]
     Indication: THYROID DISORDER

REACTIONS (2)
  - MIGRAINE [None]
  - UNDERDOSE [None]
